FAERS Safety Report 16288768 (Version 1)
Quarter: 2019Q2

REPORT INFORMATION
  Report Type: Spontaneous
  Country: US (occurrence: US)
  Receive Date: 20190509
  Receipt Date: 20190509
  Transmission Date: 20190711
  Serious: Yes (Other)
  Sender: FDA-Public Use
  Company Number: US-BAXTER-2019BAX008976

PATIENT
  Sex: Male
  Weight: 11.8 kg

DRUGS (2)
  1. CYCLOPHOSPHAMIDE FOR INJECTION, USP [Suspect]
     Active Substance: CYCLOPHOSPHAMIDE
     Dosage: EIGHT WEEKLY INJECTIONS OF CYCLOPHOSPHAMIDE (30 MG/KG) FOR A TOTAL OF 22 WEEKS OF THERAPY
     Route: 065
  2. CYCLOPHOSPHAMIDE FOR INJECTION, USP [Suspect]
     Active Substance: CYCLOPHOSPHAMIDE
     Indication: NON-HODGKIN^S LYMPHOMA
     Dosage: 40 MG/KG OF BODY WEIGHT PER WEEK FOR 14 WEEKS
     Route: 065

REACTIONS (6)
  - Nausea [Unknown]
  - Respiratory tract infection [Unknown]
  - Leukopenia [Unknown]
  - White blood cell count decreased [Unknown]
  - Alopecia [Unknown]
  - Bronchopulmonary dysplasia [Not Recovered/Not Resolved]
